FAERS Safety Report 8802940 (Version 1)
Quarter: 2012Q4

REPORT INFORMATION
  Report Type: 
  Country: GB (occurrence: GB)
  Receive Date: 20120924
  Receipt Date: 20120924
  Transmission Date: 20130627
  Serious: Yes (Hospitalization, Other)
  Sender: FDA-Public Use
  Company Number: GB-PFIZER INC-2012232447

PATIENT
  Age: 43 Year
  Sex: Female

DRUGS (5)
  1. DILTIAZEM HCL [Suspect]
     Dosage: 3360 mg, UNK
  2. GABAPENTIN [Suspect]
     Dosage: 1800 mg,UNK
  3. CITALOPRAM [Suspect]
     Dosage: 560 mg, UNK
  4. DIAZEPAM [Suspect]
     Dosage: 115 mg, UNK
  5. IRBESARTAN [Suspect]
     Dosage: 1800 mg, UNK

REACTIONS (7)
  - Overdose [Unknown]
  - Hypotension [Recovering/Resolving]
  - Bradycardia [Recovering/Resolving]
  - Atrioventricular block complete [Recovering/Resolving]
  - Pulmonary oedema [Unknown]
  - Renal impairment [Recovering/Resolving]
  - Left ventricular dysfunction [Recovering/Resolving]
